FAERS Safety Report 7292940-3 (Version None)
Quarter: 2011Q1

REPORT INFORMATION
  Report Type: 
  Country: None (occurrence: None)
  Receive Date: 20110215
  Receipt Date: 20110208
  Transmission Date: 20110831
  Serious: Yes (Other)
  Sender: FDA-Public Use
  Company Number: US-EISAI INC-E7389-01089-CLI-US

PATIENT
  Age: 53 Year
  Sex: Female

DRUGS (2)
  1. GEMCITABINE [Concomitant]
     Indication: OVARIAN CANCER
     Route: 041
     Dates: start: 20100427, end: 20101116
  2. E7389 (BOLD) [Suspect]
     Indication: OVARIAN CANCER
     Route: 041
     Dates: start: 20100427, end: 20101116

REACTIONS (1)
  - PULMONARY EMBOLISM [None]
